FAERS Safety Report 6317178-5 (Version None)
Quarter: 2009Q3

REPORT INFORMATION
  Report Type: 
  Country: None (occurrence: None)
  Receive Date: 20090820
  Receipt Date: 20090813
  Transmission Date: 20100115
  Serious: Yes (Hospitalization)
  Sender: FDA-Public Use
  Company Number: US-GILEAD-2009-0023682

PATIENT
  Sex: Female

DRUGS (4)
  1. LETAIRIS [Suspect]
     Indication: PULMONARY ARTERIAL HYPERTENSION
     Route: 048
     Dates: start: 20071011
  2. LISINOPRIL [Concomitant]
  3. SYNTHROID [Concomitant]
  4. POTASSIUM CHLORIDE [Concomitant]

REACTIONS (1)
  - DIVERTICULITIS [None]
